FAERS Safety Report 6747289-1 (Version None)
Quarter: 2010Q2

REPORT INFORMATION
  Report Type: 
  Country: None (occurrence: None)
  Receive Date: 20100528
  Receipt Date: 20100519
  Transmission Date: 20101027
  Serious: Yes (Hospitalization)
  Sender: FDA-Public Use
  Company Number: A0861521A

PATIENT
  Sex: Male

DRUGS (2)
  1. AVANDIA [Suspect]
     Indication: DIABETES MELLITUS
     Dosage: 8MG PER DAY
     Dates: start: 20031014, end: 20051213
  2. AVANDAMET [Suspect]
     Indication: DIABETES MELLITUS
     Dates: start: 20050727, end: 20050920

REACTIONS (2)
  - CARDIAC DISORDER [None]
  - THROMBOSIS [None]
